FAERS Safety Report 21293903 (Version 2)
Quarter: 2022Q3

REPORT INFORMATION
  Report Type: Spontaneous
  Country: JP (occurrence: None)
  Receive Date: 20220905
  Receipt Date: 20220919
  Transmission Date: 20221027
  Serious: Yes (Other)
  Sender: FDA-Public Use
  Company Number: JP-ROCHE-2947874

PATIENT
  Sex: Female

DRUGS (14)
  1. VALGANCICLOVIR [Suspect]
     Active Substance: VALGANCICLOVIR
     Indication: Product used for unknown indication
     Route: 048
  2. VALGANCICLOVIR [Suspect]
     Active Substance: VALGANCICLOVIR
     Route: 065
  3. ETIZOLAM [Suspect]
     Active Substance: ETIZOLAM
     Indication: Product used for unknown indication
     Route: 048
  4. GANCICLOVIR [Suspect]
     Active Substance: GANCICLOVIR
     Indication: Product used for unknown indication
     Route: 041
  5. ETHYL LOFLAZEPATE [Concomitant]
     Active Substance: ETHYL LOFLAZEPATE
  6. ATROPINE SULFATE [Concomitant]
     Active Substance: ATROPINE SULFATE
  7. PENTAZOCINE LACTATE [Concomitant]
     Active Substance: PENTAZOCINE LACTATE
  8. FLUMAZENIL [Concomitant]
     Active Substance: FLUMAZENIL
  9. MIDAZOLAM [Concomitant]
     Active Substance: MIDAZOLAM
  10. PENICILLIN [Concomitant]
     Active Substance: PENICILLIN
  11. MICAFUNGIN SODIUM [Concomitant]
     Active Substance: MICAFUNGIN SODIUM
     Route: 065
  12. GANCICLOVIR [Concomitant]
     Active Substance: GANCICLOVIR
     Route: 065
  13. PREDNISOLONE ACETATE [Concomitant]
     Active Substance: PREDNISOLONE ACETATE
  14. XYLOCAINE [Concomitant]
     Active Substance: LIDOCAINE HYDROCHLORIDE
     Route: 065

REACTIONS (6)
  - Renal impairment [Unknown]
  - Dizziness [Unknown]
  - Hyperhidrosis [Unknown]
  - Vision blurred [Unknown]
  - Cataract [Unknown]
  - Off label use [Unknown]
